FAERS Safety Report 12716088 (Version 3)
Quarter: 2016Q4

REPORT INFORMATION
  Report Type: Spontaneous
  Country: DE (occurrence: DE)
  Receive Date: 20160906
  Receipt Date: 20161016
  Transmission Date: 20170207
  Serious: Yes (Hospitalization, Other)
  Sender: FDA-Public Use
  Company Number: DE-AMGEN-DEUSP2016118463

PATIENT
  Sex: Female

DRUGS (31)
  1. DOXORUBICINE [Suspect]
     Active Substance: DOXORUBICIN
     Indication: B-CELL LYMPHOMA
     Dosage: 77 MG, QD (1 IN 1 D) FOR 1 DAY CYCLE 3
     Route: 042
     Dates: start: 20160720, end: 20160720
  2. VINCRISTINE [Suspect]
     Active Substance: VINCRISTINE
     Indication: B-CELL LYMPHOMA
     Dosage: 2 MG, QD (1 IN 1 D) FOR 1 DAY CYCLE 3
     Route: 042
     Dates: start: 20160720, end: 20160720
  3. ENOXAPARIN SODIUM. [Concomitant]
     Active Substance: ENOXAPARIN SODIUM
     Indication: PROPHYLAXIS
     Dosage: 40 MG, QD (1 IN 1 D)
     Route: 058
     Dates: start: 20160704, end: 20160705
  4. LEVOTHYROXINE SODIUM. [Concomitant]
     Active Substance: LEVOTHYROXINE SODIUM
     Indication: HYPOTHYROIDISM
     Dosage: 125 MG, QD (1 TIMES A DAY)
     Route: 048
     Dates: start: 20160705
  5. METOCLOPRAMIDE. [Concomitant]
     Active Substance: METOCLOPRAMIDE
     Indication: PROPHYLAXIS OF NAUSEA AND VOMITING
     Dosage: 10 MG, TID (3 IN 1 D)
     Route: 048
     Dates: start: 20160705, end: 20160705
  6. CIPROFLOXACIN. [Concomitant]
     Active Substance: CIPROFLOXACIN
     Indication: INFECTION
     Dosage: 500 MG, BID (2 IN 1 D)
     Route: 048
     Dates: start: 20160719, end: 20160724
  7. PEGFILGRASTIM [Suspect]
     Active Substance: PEGFILGRASTIM
     Indication: B-CELL LYMPHOMA
     Dosage: 6 MG, QD (1 IN 1 D) FOR 1 DAYS; CYCLE 5
     Route: 058
     Dates: start: 20160827, end: 20160827
  8. DOXORUBICINE [Suspect]
     Active Substance: DOXORUBICIN
     Dosage: 77.5 MG, QD (1 IN 1 D) FOR 1 DAY CYCLE 5
     Route: 042
     Dates: start: 20160824, end: 20160824
  9. PANTOPRAZOLE [Concomitant]
     Active Substance: PANTOPRAZOLE SODIUM
     Indication: PROPHYLAXIS
     Dosage: 40 MG, QD (1 IN 1 D)
  10. RANITIDINE. [Concomitant]
     Active Substance: RANITIDINE
     Indication: PROPHYLAXIS
     Dosage: 50 MG, QD (1 IN 1D)
     Route: 042
     Dates: start: 20160704, end: 20160719
  11. KALIUMCITRAT [Concomitant]
     Indication: HYPONATRAEMIA
     Dosage: 1.56/2.6 G, QD (1 IN 1 D)
     Route: 048
     Dates: start: 20160731
  12. RITUXIMAB [Suspect]
     Active Substance: RITUXIMAB
     Indication: B-CELL LYMPHOMA
     Dosage: 577.5 MG, QD (1 IN 1 D)
     Route: 042
     Dates: start: 20160719, end: 20160719
  13. CYCLOPHOSPHAMIDE. [Suspect]
     Active Substance: CYCLOPHOSPHAMIDE
     Dosage: 1162.5 MG, QD (1 IN 1 D) FOR 1 DAY IN CYCLE 5
     Route: 042
     Dates: start: 20160824, end: 20160824
  14. PREDNISOLONE. [Suspect]
     Active Substance: PREDNISOLONE
     Indication: B-CELL LYMPHOMA
     Dosage: 100 MG, QD (1 IN 1 D) FOR 5 DAYS; CYCLE 3
     Route: 048
     Dates: start: 20160720, end: 20160724
  15. LEVOTHYROXINE. [Concomitant]
     Active Substance: LEVOTHYROXINE
     Indication: HYPOTHYROIDISM
     Dosage: 100 MUG, QD (1 IN 1 D)
     Route: 048
  16. RAMIPRIL. [Concomitant]
     Active Substance: RAMIPRIL
     Indication: HYPERTENSION
     Dosage: 5 MG, QD (1 IN 1 D)
     Route: 048
     Dates: start: 2016
  17. PARACETAMOL [Concomitant]
     Active Substance: ACETAMINOPHEN
     Indication: PROPHYLAXIS
     Dosage: 1 G, FOR 1 DAY
     Route: 048
     Dates: start: 20160704, end: 20160719
  18. DIMETINDENE [Concomitant]
     Active Substance: DIMETHINDENE
     Indication: PROPHYLAXIS
     Dosage: 4 MG, QD (1 IN 1 D)
     Route: 042
     Dates: start: 20160704, end: 20160719
  19. AMPHOTERICIN B. [Concomitant]
     Active Substance: AMPHOTERICIN B
     Indication: ORAL CANDIDIASIS
     Dosage: UNK
     Route: 048
     Dates: start: 20160731, end: 20160731
  20. SULFAMETHOXAZOLE-TRIMETHOPRIM (SMZ) [Concomitant]
     Active Substance: SULFAMETHOXAZOLE\TRIMETHOPRIM
     Indication: PROPHYLAXIS
     Dosage: 960 MG, 2 TIMES/WK (1920 MG)
     Route: 048
  21. RITUXIMAB [Suspect]
     Active Substance: RITUXIMAB
     Dosage: 581.25 MG, QD (1 IN 1 D)
     Route: 042
     Dates: start: 20160823, end: 20160823
  22. CYCLOPHOSPHAMIDE. [Suspect]
     Active Substance: CYCLOPHOSPHAMIDE
     Indication: B-CELL LYMPHOMA
     Dosage: 1155 MG, QD (1 IN 1 D) ) FOR 1 DAY IN CYCLE 3
     Route: 042
     Dates: start: 20160720, end: 20160720
  23. SODIUM CHLORIDE. [Concomitant]
     Active Substance: SODIUM CHLORIDE
     Indication: PROPHYLAXIS
     Dosage: 9 %, QD (1 IN 1 D)
     Route: 042
     Dates: start: 20160704, end: 20160720
  24. FUROSEMIDE. [Concomitant]
     Active Substance: FUROSEMIDE
     Indication: FLUID OVERLOAD
     Dosage: 40 MG, ONE TIME DOSE (FOR 1 DAY)
     Route: 048
     Dates: start: 20160720, end: 20160720
  25. RASBURICASE [Concomitant]
     Active Substance: RASBURICASE
     Indication: PROPHYLAXIS
     Dosage: 3 MG, ONE TIME DOSE (FOR 1 DAY)
     Route: 042
     Dates: start: 20160719, end: 20160719
  26. COLECALCIFEROL [Concomitant]
     Active Substance: CHOLECALCIFEROL
     Indication: PROPHYLAXIS
     Dosage: 20000 IU, QWK (1 IN 1 WK)
     Route: 048
  27. SODIUM CHLORIDE. [Concomitant]
     Active Substance: SODIUM CHLORIDE
     Dosage: 1.5 L, QD (1 TIMES A DAY FOR 2 DAYS)
  28. KALIUMCITRAT [Concomitant]
     Indication: HYPOKALAEMIA
     Dosage: UNK, ONE TIME DOSE (FOR 1 DAY)
     Route: 048
     Dates: start: 20160720, end: 20160720
  29. PREDNISOLONE. [Suspect]
     Active Substance: PREDNISOLONE
     Dosage: 100 MG, QD (1 IN 1 D) FOR 5 DAYS; CYCLE 5
     Route: 048
     Dates: start: 20160824, end: 20160828
  30. ALLOPURINOL. [Concomitant]
     Active Substance: ALLOPURINOL
     Indication: HYPERURICAEMIA
     Dosage: 100 MG, QD (1 IN 1 D)
     Route: 048
  31. ONDANSETRON [Concomitant]
     Active Substance: ONDANSETRON
     Indication: PROPHYLAXIS OF NAUSEA AND VOMITING
     Dosage: 8 MG, BID (2 IN 1 D)
     Route: 048
     Dates: start: 20160705, end: 20160705

REACTIONS (2)
  - Febrile neutropenia [Recovered/Resolved]
  - Hyponatraemia [Recovered/Resolved]

NARRATIVE: CASE EVENT DATE: 20160731
